FAERS Safety Report 24741066 (Version 1)
Quarter: 2024Q4

REPORT INFORMATION
  Report Type: Spontaneous
  Country: US (occurrence: US)
  Receive Date: 20241217
  Receipt Date: 20241217
  Transmission Date: 20250114
  Serious: Yes (Hospitalization, Other)
  Sender: SPECGX
  Company Number: US-SPECGX-T202402346

PATIENT
  Age: 17 Year
  Sex: Male

DRUGS (9)
  1. ROXICODONE [Suspect]
     Active Substance: OXYCODONE HYDROCHLORIDE
     Indication: Abdominal pain
     Dosage: UNK
     Route: 045
  2. OXYCODONE [Suspect]
     Active Substance: OXYCODONE
     Indication: Pain
     Dosage: 10 MILLIGRAM, PRN, EVERY FOUR HOURS
     Route: 065
  3. OXYCODONE HYDROCHLORIDE [Suspect]
     Active Substance: OXYCODONE HYDROCHLORIDE
     Indication: Pain
     Dosage: 1MG/ML FOR 5ML DOSES, EVERY FOUR HOURS AS NEEDED
     Route: 048
  4. NALTREXONE [Suspect]
     Active Substance: NALTREXONE
     Indication: Drug dependence
     Dosage: 50 MILLIGRAM, QD
     Route: 048
  5. FENTANYL [Suspect]
     Active Substance: FENTANYL
     Indication: Pain
     Dosage: THREE 25 MICROGRAM INJECTIONS
     Route: 065
  6. FENTANYL [Suspect]
     Active Substance: FENTANYL
     Indication: Pain
     Dosage: PATIENT-CONTROLLED ANALGESIA OF FENTANYL AT 60 MCG/HR FOR THREE DAYS
     Route: 065
  7. ACETAMINOPHEN [Suspect]
     Active Substance: ACETAMINOPHEN
     Indication: Pain
     Dosage: UNK
     Route: 065
  8. CANNABIS SATIVA SUBSP. INDICA TOP [Suspect]
     Active Substance: CANNABIS SATIVA SUBSP. INDICA TOP
     Indication: Product used for unknown indication
     Dosage: 1-2 GRAMS, DAILY
  9. CANNABIS SATIVA SUBSP. INDICA TOP [Suspect]
     Active Substance: CANNABIS SATIVA SUBSP. INDICA TOP
     Indication: Stress
     Dosage: DAILY
     Route: 065

REACTIONS (9)
  - Suicidal ideation [Unknown]
  - Major depression [Unknown]
  - Drug dependence [Recovering/Resolving]
  - Substance use [Unknown]
  - Drug withdrawal syndrome [Unknown]
  - Suspected counterfeit product [Unknown]
  - Wrong technique in product usage process [Unknown]
  - Treatment noncompliance [Unknown]
  - Drug diversion [Unknown]
